FAERS Safety Report 7044782-1 (Version None)
Quarter: 2010Q4

REPORT INFORMATION
  Report Type: 
  Country: None (occurrence: None)
  Receive Date: 20101014
  Receipt Date: 20100902
  Transmission Date: 20110411
  Serious: Yes (Death, Hospitalization, Other)
  Sender: FDA-Public Use
  Company Number: US-BAXTER-2009BH015720

PATIENT
  Age: 56 Year
  Sex: Male
  Weight: 113 kg

DRUGS (56)
  1. HEPARIN SODIUM INJECTION [Suspect]
     Indication: HAEMODIALYSIS
     Route: 065
     Dates: start: 20070915, end: 20070915
  2. HEPARIN SODIUM INJECTION [Suspect]
     Indication: PERITONEAL DIALYSIS
     Route: 065
     Dates: start: 20070915, end: 20070915
  3. HEPARIN SODIUM INJECTION [Suspect]
     Indication: INTRAVENOUS CATHETER MANAGEMENT
     Route: 065
     Dates: start: 20070915, end: 20070915
  4. HEPARIN SODIUM INJECTION [Suspect]
     Indication: CATHETERISATION CARDIAC
     Route: 065
     Dates: start: 20070915, end: 20070915
  5. HEPARIN SODIUM INJECTION [Suspect]
     Indication: CARDIAC VENTRICULOGRAM
     Route: 065
     Dates: start: 20070915, end: 20070915
  6. HEPARIN SODIUM INJECTION [Suspect]
     Route: 065
     Dates: start: 20061201
  7. HEPARIN SODIUM INJECTION [Suspect]
     Route: 065
     Dates: start: 20061201
  8. HEPARIN SODIUM INJECTION [Suspect]
     Route: 065
     Dates: start: 20061201
  9. HEPARIN SODIUM INJECTION [Suspect]
     Route: 065
     Dates: start: 20061201
  10. HEPARIN SODIUM INJECTION [Suspect]
     Route: 065
     Dates: start: 20061201
  11. HEPARIN SODIUM INJECTION [Suspect]
     Route: 010
     Dates: start: 20070920, end: 20071103
  12. HEPARIN SODIUM INJECTION [Suspect]
     Route: 010
     Dates: start: 20070920, end: 20071103
  13. HEPARIN SODIUM INJECTION [Suspect]
     Route: 010
     Dates: start: 20070920, end: 20071103
  14. HEPARIN SODIUM INJECTION [Suspect]
     Route: 010
     Dates: start: 20070920, end: 20071103
  15. HEPARIN SODIUM INJECTION [Suspect]
     Route: 010
     Dates: start: 20070920, end: 20071103
  16. HEPARIN SODIUM INJECTION [Suspect]
     Route: 010
     Dates: start: 20071108, end: 20071119
  17. HEPARIN SODIUM INJECTION [Suspect]
     Route: 010
     Dates: start: 20071108, end: 20071119
  18. HEPARIN SODIUM INJECTION [Suspect]
     Route: 010
     Dates: start: 20071108, end: 20071119
  19. HEPARIN SODIUM INJECTION [Suspect]
     Route: 010
     Dates: start: 20071108, end: 20071119
  20. HEPARIN SODIUM INJECTION [Suspect]
     Route: 010
     Dates: start: 20071108, end: 20071119
  21. HEPARIN SODIUM INJECTION [Suspect]
     Route: 040
     Dates: start: 20071106, end: 20071106
  22. HEPARIN SODIUM INJECTION [Suspect]
     Route: 040
     Dates: start: 20071106, end: 20071106
  23. HEPARIN SODIUM INJECTION [Suspect]
     Route: 040
     Dates: start: 20071106, end: 20071106
  24. HEPARIN SODIUM INJECTION [Suspect]
     Route: 040
     Dates: start: 20071106, end: 20071106
  25. HEPARIN SODIUM INJECTION [Suspect]
     Route: 040
     Dates: start: 20071106, end: 20071106
  26. HEPARIN SODIUM INJECTION [Suspect]
     Route: 013
     Dates: start: 20071128, end: 20071128
  27. HEPARIN SODIUM INJECTION [Suspect]
     Route: 013
     Dates: start: 20071128, end: 20071128
  28. HEPARIN SODIUM INJECTION [Suspect]
     Route: 013
     Dates: start: 20071128, end: 20071128
  29. HEPARIN SODIUM INJECTION [Suspect]
     Route: 013
     Dates: start: 20071128, end: 20071128
  30. HEPARIN SODIUM INJECTION [Suspect]
     Route: 013
     Dates: start: 20071128, end: 20071128
  31. HEPARIN SODIUM INJECTION [Suspect]
     Route: 033
     Dates: start: 20080917, end: 20080920
  32. HEPARIN SODIUM INJECTION [Suspect]
     Route: 033
     Dates: start: 20080917, end: 20080920
  33. HEPARIN SODIUM INJECTION [Suspect]
     Route: 033
     Dates: start: 20080917, end: 20080920
  34. HEPARIN SODIUM INJECTION [Suspect]
     Route: 033
     Dates: start: 20080917, end: 20080920
  35. HEPARIN SODIUM INJECTION [Suspect]
     Route: 033
     Dates: start: 20080917, end: 20080920
  36. HEPARIN SODIUM INJECTION [Suspect]
     Route: 033
     Dates: start: 20080920, end: 20080922
  37. HEPARIN SODIUM INJECTION [Suspect]
     Route: 033
     Dates: start: 20080920, end: 20080922
  38. HEPARIN SODIUM INJECTION [Suspect]
     Route: 033
     Dates: start: 20080920, end: 20080922
  39. HEPARIN SODIUM INJECTION [Suspect]
     Route: 033
     Dates: start: 20080920, end: 20080922
  40. HEPARIN SODIUM INJECTION [Suspect]
     Route: 033
     Dates: start: 20080920, end: 20080922
  41. ASPIRIN [Concomitant]
     Indication: PRODUCT USED FOR UNKNOWN INDICATION
     Route: 065
  42. LASIX [Concomitant]
     Indication: PRODUCT USED FOR UNKNOWN INDICATION
     Route: 065
  43. ZAROXOLYN [Concomitant]
     Indication: PRODUCT USED FOR UNKNOWN INDICATION
     Route: 065
  44. LISINOPRIL [Concomitant]
     Indication: PRODUCT USED FOR UNKNOWN INDICATION
     Route: 065
  45. HUMALOG [Concomitant]
     Indication: PRODUCT USED FOR UNKNOWN INDICATION
     Route: 065
  46. RENAGEL [Concomitant]
     Indication: PRODUCT USED FOR UNKNOWN INDICATION
     Route: 065
  47. SODIUM BICARBONATE [Concomitant]
     Indication: PRODUCT USED FOR UNKNOWN INDICATION
     Route: 065
  48. CALCIUM [Concomitant]
     Indication: PRODUCT USED FOR UNKNOWN INDICATION
     Route: 065
  49. SYNTHROID [Concomitant]
     Indication: PRODUCT USED FOR UNKNOWN INDICATION
     Route: 065
  50. PHOSLO [Concomitant]
     Indication: PRODUCT USED FOR UNKNOWN INDICATION
     Route: 065
  51. NORCO [Concomitant]
     Indication: PRODUCT USED FOR UNKNOWN INDICATION
     Route: 065
  52. ULTRAM [Concomitant]
     Indication: PRODUCT USED FOR UNKNOWN INDICATION
     Route: 065
  53. ANTIBIOTICS [Concomitant]
     Indication: PRODUCT USED FOR UNKNOWN INDICATION
     Route: 065
  54. STEROID ANTIBACTERIALS [Concomitant]
     Indication: PRODUCT USED FOR UNKNOWN INDICATION
     Route: 065
  55. IRON [Concomitant]
     Indication: PRODUCT USED FOR UNKNOWN INDICATION
     Route: 065
  56. NOVEL ERYTHROPOIESIS STIMULATING PROTEIN [Concomitant]
     Indication: PRODUCT USED FOR UNKNOWN INDICATION
     Route: 065

REACTIONS (15)
  - ABDOMINAL PAIN [None]
  - ARRHYTHMIA [None]
  - CARDIAC ARREST [None]
  - CEREBRAL ISCHAEMIA [None]
  - CHEST PAIN [None]
  - DIABETES MELLITUS INADEQUATE CONTROL [None]
  - DIARRHOEA [None]
  - DYSPNOEA [None]
  - GANGRENE [None]
  - HYPERHIDROSIS [None]
  - MUSCLE SPASMS [None]
  - PERITONITIS BACTERIAL [None]
  - POLYNEUROPATHY [None]
  - RENAL FAILURE [None]
  - TRANSIENT ISCHAEMIC ATTACK [None]
